FAERS Safety Report 22049863 (Version 4)
Quarter: 2023Q1

REPORT INFORMATION
  Report Type: Spontaneous
  Country: IN (occurrence: IN)
  Receive Date: 20230301
  Receipt Date: 20230330
  Transmission Date: 20230417
  Serious: Yes (Other)
  Sender: FDA-Public Use
  Company Number: IN-PFIZER INC-PV202300034628

PATIENT
  Age: 77 Year
  Sex: Female

DRUGS (6)
  1. PALBOCICLIB [Suspect]
     Active Substance: PALBOCICLIB
     Indication: Neoplasm
     Dosage: 125 MG, 1X/DAY
     Route: 048
     Dates: start: 20230120
  2. PALBOCICLIB [Suspect]
     Active Substance: PALBOCICLIB
     Dosage: 125 MG, 1X/DAY
     Route: 048
     Dates: start: 20230222
  3. STRANTAS [Concomitant]
     Dosage: UNK
     Dates: start: 20221106
  4. ACETAMINOPHEN [Concomitant]
     Active Substance: ACETAMINOPHEN
     Dosage: 650 MG
  5. ANASTROZOLE [Concomitant]
     Active Substance: ANASTROZOLE
     Dosage: 1 MG, 1X/DAY
     Dates: start: 20221024
  6. FULVESTRANT [Concomitant]
     Active Substance: FULVESTRANT
     Dosage: 500 MG(1 IN EACH BUTTOCK)
     Route: 030

REACTIONS (8)
  - Anaemia [Unknown]
  - Purulent discharge [Unknown]
  - Blood creatine increased [Unknown]
  - Cough [Not Recovered/Not Resolved]
  - Nausea [Not Recovered/Not Resolved]
  - White blood cell count decreased [Unknown]
  - Neutrophil count decreased [Unknown]
  - Pyrexia [Not Recovered/Not Resolved]

NARRATIVE: CASE EVENT DATE: 20230101
